FAERS Safety Report 4984419-6 (Version None)
Quarter: 2006Q2

REPORT INFORMATION
  Report Type: 
  Country: None (occurrence: None)
  Receive Date: 20060427
  Receipt Date: 20060421
  Transmission Date: 20061013
  Serious: Yes (Death)
  Sender: FDA-Public Use
  Company Number: US-JNJFOC-20060404954

PATIENT
  Age: 12 Month
  Sex: Male

DRUGS (2)
  1. CHILDREN'S TYLENOL PLUS COLD AND COUGH [Suspect]
     Indication: UPPER RESPIRATORY TRACT CONGESTION
  2. CHILDREN'S TYLENOL PLUS COLD AND COUGH [Suspect]

REACTIONS (2)
  - DEHYDRATION [None]
  - DRUG TOXICITY [None]
